FAERS Safety Report 6891538-6 (Version None)
Quarter: 2010Q3

REPORT INFORMATION
  Report Type: 
  Country: None (occurrence: None)
  Receive Date: 20100731
  Receipt Date: 20071018
  Transmission Date: 20110219
  Serious: No
  Sender: FDA-Public Use
  Company Number: US-PFIZER INC-2007060705

PATIENT
  Sex: Female
  Weight: 73.94 kg

DRUGS (2)
  1. CAMPTOSAR [Suspect]
     Indication: GASTROINTESTINAL DISORDER
     Route: 042
     Dates: start: 20070130, end: 20070410
  2. FLUOROURACIL/FOLINIC ACID/IRINOTECAN [Concomitant]

REACTIONS (1)
  - MUSCLE SPASMS [None]
